FAERS Safety Report 14578448 (Version 1)
Quarter: 2018Q1

REPORT INFORMATION
  Report Type: Spontaneous
  Country: US (occurrence: US)
  Receive Date: 20180227
  Receipt Date: 20180227
  Transmission Date: 20180509
  Serious: Yes (Other)
  Sender: FDA-Public Use
  Company Number: None

PATIENT
  Age: 25 Year
  Sex: Female
  Weight: 85.73 kg

DRUGS (1)
  1. MIRENA [Suspect]
     Active Substance: LEVONORGESTREL
     Indication: CONTRACEPTION
     Dosage: 20 UGM 24 HR INTRA-UTERINE
     Route: 015
     Dates: start: 20140612, end: 20180219

REACTIONS (3)
  - Amenorrhoea [None]
  - Pregnancy with contraceptive device [None]
  - Pregnancy test positive [None]

NARRATIVE: CASE EVENT DATE: 20180219
